FAERS Safety Report 11326240 (Version 1)
Quarter: 2015Q3

REPORT INFORMATION
  Report Type: Report from Study
  Country: US (occurrence: US)
  Receive Date: 20150731
  Receipt Date: 20150731
  Transmission Date: 20151125
  Serious: Yes (Death, Other)
  Sender: FDA-Public Use
  Company Number: US-ROCHE-1613396

PATIENT

DRUGS (7)
  1. MYCOPHENOLATE MOFETIL. [Suspect]
     Active Substance: MYCOPHENOLATE MOFETIL
     Indication: PROPHYLAXIS AGAINST TRANSPLANT REJECTION
     Dosage: INITIATED EARLY AR POD 1-3 DAYS
     Route: 048
  2. TACROLIMUS. [Suspect]
     Active Substance: TACROLIMUS
     Indication: PROPHYLAXIS AGAINST TRANSPLANT REJECTION
     Dosage: DOSE: 2-4 NG/ML
     Route: 065
  3. METHYLPREDNISOLONE. [Suspect]
     Active Substance: METHYLPREDNISOLONE
     Indication: PROPHYLAXIS AGAINST TRANSPLANT REJECTION
     Route: 065
  4. ANTI-THYMOCYTE GLOBULIN (RABBIT) NOS [Suspect]
     Active Substance: LAPINE T-LYMPHOCYTE IMMUNE GLOBULIN
     Indication: PROPHYLAXIS AGAINST TRANSPLANT REJECTION
     Route: 042
  5. MYCOPHENOLATE MOFETIL. [Suspect]
     Active Substance: MYCOPHENOLATE MOFETIL
     Route: 048
  6. ANTI-THYMOCYTE GLOBULIN (RABBIT) NOS [Suspect]
     Active Substance: LAPINE T-LYMPHOCYTE IMMUNE GLOBULIN
     Dosage: DIVIDED DOSE, 4 DOSES
     Route: 042
  7. SIROLIMUS. [Suspect]
     Active Substance: SIROLIMUS
     Indication: PROPHYLAXIS AGAINST TRANSPLANT REJECTION
     Dosage: DOSE:  8-12 NG/ML
     Route: 065

REACTIONS (23)
  - Enterobacter pneumonia [Fatal]
  - Pneumonia pneumococcal [Fatal]
  - Bronchopulmonary aspergillosis [Fatal]
  - Urosepsis [Fatal]
  - Abdominal abscess [Fatal]
  - Abscess bacterial [Fatal]
  - Cytomegalovirus enteritis [Unknown]
  - Post transplant lymphoproliferative disorder [Unknown]
  - Atypical mycobacterial pneumonia [Fatal]
  - Accidental overdose [Unknown]
  - Histoplasmosis [Fatal]
  - Epstein-Barr virus infection [Unknown]
  - Bacterial sepsis [Fatal]
  - Candida infection [Fatal]
  - Cytomegalovirus infection [Unknown]
  - Pneumonia pseudomonal [Fatal]
  - Polyomavirus-associated nephropathy [Unknown]
  - Cytomegalovirus syndrome [Unknown]
  - Pneumonitis [Unknown]
  - Cytomegalovirus colitis [Unknown]
  - Cellulitis streptococcal [Fatal]
  - Neoplasm malignant [Fatal]
  - Death [Fatal]
